FAERS Safety Report 7867415-0 (Version None)
Quarter: 2011Q4

REPORT INFORMATION
  Report Type: 
  Country: None (occurrence: None)
  Receive Date: 20111028
  Receipt Date: 20111019
  Transmission Date: 20120403
  Serious: Yes (Hospitalization, Other)
  Sender: FDA-Public Use
  Company Number: US-BAYER-201029364NA

PATIENT
  Age: 19 Year
  Sex: Female
  Weight: 53.968 kg

DRUGS (5)
  1. YAZ [Suspect]
     Indication: ORAL CONTRACEPTION
     Route: 048
     Dates: end: 20080605
  2. NSAID'S [Concomitant]
  3. YASMIN [Suspect]
     Indication: ORAL CONTRACEPTION
     Route: 048
     Dates: start: 20070401
  4. ANTITHROMBOTIC AGENTS [Concomitant]
  5. ANTIBIOTICS [Concomitant]

REACTIONS (12)
  - EMOTIONAL DISTRESS [None]
  - PARAESTHESIA [None]
  - PAIN [None]
  - DIZZINESS [None]
  - HYPOAESTHESIA [None]
  - CONVULSION [None]
  - CEREBRAL INFARCTION [None]
  - NAUSEA [None]
  - VOMITING [None]
  - MUSCLE SPASMS [None]
  - BRAIN INJURY [None]
  - HEADACHE [None]
